FAERS Safety Report 7962414-2 (Version None)
Quarter: 2011Q4

REPORT INFORMATION
  Report Type: 
  Country: None (occurrence: None)
  Receive Date: 20111207
  Receipt Date: 20111123
  Transmission Date: 20120403
  Serious: Yes (Hospitalization)
  Sender: FDA-Public Use
  Company Number: PL-UCBSA-041930

PATIENT
  Age: 64 Year
  Sex: Female
  Weight: 83 kg

DRUGS (7)
  1. METHOTREXATE [Concomitant]
     Indication: PSORIATIC ARTHROPATHY
     Dates: start: 20100501
  2. CALCIUM DOBESILATE [Concomitant]
     Indication: OSTEOPENIA
     Dates: start: 20070101
  3. CDP870 [Suspect]
     Indication: PSORIATIC ARTHROPATHY
     Dosage: NO OF DOSES RECEIVED : 18, UNIT : MG
     Route: 058
     Dates: start: 20101228, end: 20110728
  4. ACID FOLIC [Concomitant]
     Indication: PSORIATIC ARTHROPATHY
     Dates: start: 20070301
  5. FOSTEX [Concomitant]
     Indication: ASTHMA
     Dosage: PRN
     Dates: start: 20100801
  6. ATROVENT [Concomitant]
     Indication: ASTHMA
     Dosage: PRN
     Dates: start: 20070101
  7. TRAMADOL HCL [Concomitant]
     Indication: PSORIATIC ARTHROPATHY
     Dosage: PRN
     Dates: start: 20101206

REACTIONS (1)
  - LUPUS-LIKE SYNDROME [None]
